FAERS Safety Report 15457475 (Version 3)
Quarter: 2018Q4

REPORT INFORMATION
  Report Type: Spontaneous
  Country: GB (occurrence: GB)
  Receive Date: 20181002
  Receipt Date: 20181205
  Transmission Date: 20190204
  Serious: Yes (Other)
  Sender: FDA-Public Use
  Company Number: GB-JNJFOC-20180931894

PATIENT
  Sex: Male

DRUGS (2)
  1. BENADRYL ONE A DAY RELIEF [Suspect]
     Active Substance: CETIRIZINE HYDROCHLORIDE
     Indication: SEASONAL ALLERGY
     Dosage: 1 TAB PER DAY FOR COUPLE OF TIMES A WEEK,  WORSE SUMMER USE IT MORE, THEN ONE EVERY??DAY FOR 5 YEARS
     Route: 048
     Dates: start: 20120401, end: 2018
  2. BENADRYL ONE A DAY RELIEF [Suspect]
     Active Substance: CETIRIZINE HYDROCHLORIDE
     Route: 048

REACTIONS (3)
  - Pruritus [Not Recovered/Not Resolved]
  - Adverse event [Not Recovered/Not Resolved]
  - Dementia Alzheimer^s type [Not Recovered/Not Resolved]
